FAERS Safety Report 12536524 (Version 1)
Quarter: 2016Q3

REPORT INFORMATION
  Report Type: Spontaneous
  Country: US (occurrence: US)
  Receive Date: 20160707
  Receipt Date: 20160707
  Transmission Date: 20161109
  Serious: No
  Sender: FDA-Public Use
  Company Number: US-PFIZER INC-2016329357

PATIENT
  Sex: Female

DRUGS (3)
  1. BICILLIN L-A [Suspect]
     Active Substance: PENICILLIN G BENZATHINE
     Indication: ENCEPHALOMYELITIS
  2. BICILLIN L-A [Suspect]
     Active Substance: PENICILLIN G BENZATHINE
     Indication: RHEUMATIC FEVER
     Dosage: 1.2 MILLION UNITS, ONCE A MONTH
     Route: 030
     Dates: start: 201402
  3. TYLENOL [Suspect]
     Active Substance: ACETAMINOPHEN
     Dosage: SEVERAL TIMES

REACTIONS (3)
  - Product use issue [Unknown]
  - Metabolic disorder [Unknown]
  - Cerebrovascular disorder [Unknown]
